FAERS Safety Report 8422690-9 (Version None)
Quarter: 2012Q2

REPORT INFORMATION
  Report Type: 
  Country: None (occurrence: None)
  Receive Date: 20120608
  Receipt Date: 20120530
  Transmission Date: 20120825
  Serious: Yes (Hospitalization, Other)
  Sender: FDA-Public Use
  Company Number: US-JNJFOC-20120300703

PATIENT
  Sex: Female
  Weight: 56.25 kg

DRUGS (4)
  1. FERROUS SULFATE TAB [Concomitant]
     Indication: IRON DEFICIENCY
     Route: 048
  2. MULTI-VITAMINS [Concomitant]
     Route: 048
  3. FERROUS SULFATE TAB [Concomitant]
     Route: 042
  4. REMICADE [Suspect]
     Indication: CROHN'S DISEASE
     Dosage: APPROXIMATE TOAL OF INFUSION RECEIVED IS 22
     Route: 042
     Dates: start: 20090306

REACTIONS (2)
  - CROHN'S DISEASE [None]
  - INTESTINAL CYST [None]
